FAERS Safety Report 9944249 (Version 1)
Quarter: 2014Q1

REPORT INFORMATION
  Report Type: Report from Study
  Country: US (occurrence: US)
  Receive Date: 20140303
  Receipt Date: 20140303
  Transmission Date: 20141002
  Serious: No
  Sender: FDA-Public Use
  Company Number: US-ABBVIE-13P-163-1051363-00

PATIENT
  Age: 45 Year
  Sex: Female

DRUGS (9)
  1. HUMIRA [Suspect]
     Indication: CROHN^S DISEASE
     Dates: start: 20111017
  2. SYNTHROID [Concomitant]
     Indication: HYPOTHYROIDISM
  3. COZAAR [Concomitant]
     Indication: HYPERTENSION
  4. VENTOLIN [Concomitant]
     Indication: ASTHMA
     Dosage: INHALER
  5. RESTASIS [Concomitant]
     Indication: DRY EYE
     Dosage: TO EACH EYE
  6. B12 [Concomitant]
     Indication: PRODUCT USED FOR UNKNOWN INDICATION
     Dosage: MONTHLY
     Route: 050
  7. LIDODERM [Concomitant]
     Indication: PAIN
     Dosage: PATCH
  8. NORTRIPTYLINE [Concomitant]
     Dates: start: 201211
  9. KLONOPIN [Concomitant]
     Dosage: AS NEEDED UP TO FOUR TIMES A DAY

REACTIONS (2)
  - Injection site pain [Not Recovered/Not Resolved]
  - Injection site bruising [Not Recovered/Not Resolved]
